FAERS Safety Report 6369850-9 (Version None)
Quarter: 2009Q3

REPORT INFORMATION
  Report Type: 
  Country: None (occurrence: None)
  Receive Date: 20090923
  Receipt Date: 20070703
  Transmission Date: 20100115
  Serious: Yes (Other)
  Sender: FDA-Public Use
  Company Number: US-ASTRAZENECA-2006UW11178

PATIENT
  Sex: Female
  Weight: 54.4 kg

DRUGS (26)
  1. SEROQUEL [Suspect]
     Indication: AGITATION
     Dosage: 100 - 1500 MG
     Route: 048
     Dates: start: 19990501
  2. SEROQUEL [Suspect]
     Indication: HALLUCINATION, AUDITORY
     Dosage: 100 - 1500 MG
     Route: 048
     Dates: start: 19990501
  3. SEROQUEL [Suspect]
     Indication: MOOD SWINGS
     Dosage: 100 - 1500 MG
     Route: 048
     Dates: start: 19990501
  4. SEROQUEL [Suspect]
     Indication: HALLUCINATION, VISUAL
     Dosage: 100 - 1500 MG
     Route: 048
     Dates: start: 19990501
  5. SEROQUEL [Suspect]
     Route: 048
     Dates: start: 20040101, end: 20060101
  6. SEROQUEL [Suspect]
     Route: 048
     Dates: start: 20040101, end: 20060101
  7. SEROQUEL [Suspect]
     Route: 048
     Dates: start: 20040101, end: 20060101
  8. SEROQUEL [Suspect]
     Route: 048
     Dates: start: 20040101, end: 20060101
  9. GEODON [Concomitant]
  10. HALDOL [Concomitant]
  11. NAVANE [Concomitant]
  12. RISPERDAL [Concomitant]
  13. THORAZINE [Concomitant]
  14. CLONAZEPAM [Concomitant]
  15. EFFEXOR [Concomitant]
  16. BACLOFEN [Concomitant]
  17. PREVACID [Concomitant]
  18. VALIUM [Concomitant]
  19. NEURONTIN [Concomitant]
  20. AMBIEN [Concomitant]
  21. LORTAB [Concomitant]
  22. DURAGESIC-100 [Concomitant]
  23. ADVAIR HFA [Concomitant]
  24. COPAXONE [Concomitant]
  25. ATROVENT [Concomitant]
  26. LASIX [Concomitant]

REACTIONS (3)
  - DIABETES MELLITUS [None]
  - KETOACIDOSIS [None]
  - PANCREATITIS [None]
